FAERS Safety Report 7027058-8 (Version None)
Quarter: 2010Q4

REPORT INFORMATION
  Report Type: 
  Country: None (occurrence: None)
  Receive Date: 20101004
  Receipt Date: 20100922
  Transmission Date: 20110411
  Serious: Yes (Hospitalization)
  Sender: FDA-Public Use
  Company Number: US-JNJFOC-20100903638

PATIENT
  Sex: Female
  Weight: 55.88 kg

DRUGS (7)
  1. REMICADE [Suspect]
     Indication: INFLAMMATORY BOWEL DISEASE
     Route: 042
  2. REMICADE [Suspect]
     Route: 042
  3. PERIACTIN [Concomitant]
  4. 5ASA [Concomitant]
     Route: 048
  5. PREVACID [Concomitant]
  6. HYDROCORTISONE [Concomitant]
  7. PENTASA [Concomitant]

REACTIONS (1)
  - IMPAIRED GASTRIC EMPTYING [None]
